FAERS Safety Report 23047665 (Version 1)
Quarter: 2023Q4

REPORT INFORMATION
  Report Type: Spontaneous
  Country: US (occurrence: US)
  Receive Date: 20231010
  Receipt Date: 20231010
  Transmission Date: 20240109
  Serious: No
  Sender: FDA-Public Use
  Company Number: US-JNJFOC-20230967959

PATIENT
  Age: 73 Year
  Sex: Female
  Weight: 67.192 kg

DRUGS (1)
  1. DARZALEX FASPRO [Suspect]
     Active Substance: DARATUMUMAB\HYALURONIDASE-FIHJ
     Indication: Plasma cell myeloma
     Route: 058
     Dates: start: 20230621

REACTIONS (2)
  - Application site rash [Unknown]
  - Keloid scar [Unknown]

NARRATIVE: CASE EVENT DATE: 20230928
